FAERS Safety Report 14187753 (Version 1)
Quarter: 2017Q4

REPORT INFORMATION
  Report Type: Spontaneous
  Country: US (occurrence: None)
  Receive Date: 20171114
  Receipt Date: 20171114
  Transmission Date: 20180321
  Serious: Yes (Disabling, Other)
  Sender: FDA-Public Use
  Company Number: None

PATIENT
  Age: 68 Year
  Sex: Female
  Weight: 69.4 kg

DRUGS (5)
  1. TERBINAFINE HCL [Suspect]
     Active Substance: TERBINAFINE HYDROCHLORIDE
     Indication: TINEA PEDIS
     Route: 048
     Dates: start: 20170901, end: 20170907
  2. BABY ASPIRIN [Concomitant]
     Active Substance: ASPIRIN
  3. NAPROXEN. [Concomitant]
     Active Substance: NAPROXEN
  4. TERBINAFINE HCL [Suspect]
     Active Substance: TERBINAFINE HYDROCHLORIDE
     Indication: ONYCHOMYCOSIS
     Route: 048
     Dates: start: 20170901, end: 20170907
  5. VITAMIN D [Concomitant]
     Active Substance: CHOLECALCIFEROL

REACTIONS (16)
  - Malaise [None]
  - Bowel movement irregularity [None]
  - Gastrointestinal disorder [None]
  - Diarrhoea [None]
  - Abdominal pain upper [None]
  - Depression [None]
  - Eructation [None]
  - Constipation [None]
  - Fatigue [None]
  - Flatulence [None]
  - Ageusia [None]
  - Weight decreased [None]
  - Dysgeusia [None]
  - Pain in extremity [None]
  - Decreased appetite [None]
  - Nausea [None]

NARRATIVE: CASE EVENT DATE: 20170907
